FAERS Safety Report 6550753-1 (Version None)
Quarter: 2010Q1

REPORT INFORMATION
  Report Type: 
  Country: None (occurrence: None)
  Receive Date: 20100122
  Receipt Date: 20100122
  Transmission Date: 20100710
  Serious: Yes (Hospitalization)
  Sender: FDA-Public Use
  Company Number: None

PATIENT
  Sex: Male
  Weight: 83.5 kg

DRUGS (5)
  1. ZOMETA [Suspect]
     Dosage: 3 MG
  2. AVELOX [Concomitant]
  3. PROTONIX [Concomitant]
  4. REGLAN [Concomitant]
  5. STEROIDS [Concomitant]

REACTIONS (10)
  - ABDOMINAL PAIN UPPER [None]
  - CHRONIC OBSTRUCTIVE PULMONARY DISEASE [None]
  - CONDITION AGGRAVATED [None]
  - DEHYDRATION [None]
  - DYSURIA [None]
  - ENCEPHALOPATHY [None]
  - HYPOXIA [None]
  - NAUSEA [None]
  - VOMITING [None]
  - WEIGHT DECREASED [None]
